FAERS Safety Report 8538626-6 (Version None)
Quarter: 2012Q3

REPORT INFORMATION
  Report Type: 
  Country: None (occurrence: None)
  Receive Date: 20120718
  Receipt Date: 20120718
  Transmission Date: 20120928
  Serious: No
  Sender: FDA-Public Use
  Company Number: None

PATIENT
  Age: 87 Year
  Sex: Male
  Weight: 92.9874 kg

DRUGS (2)
  1. ACTOS [Suspect]
     Dosage: 1 DAILY
     Dates: start: 20100208, end: 20100901
  2. ACTOS [Suspect]
     Indication: TYPE 2 DIABETES MELLITUS
     Dosage: 1 DAILY
     Dates: start: 20100208, end: 20100910

REACTIONS (1)
  - TOOTHACHE [None]
